FAERS Safety Report 24450620 (Version 1)
Quarter: 2024Q4

REPORT INFORMATION
  Report Type: Spontaneous
  Country: US (occurrence: None)
  Receive Date: 20241016
  Receipt Date: 20241016
  Transmission Date: 20250115
  Serious: No
  Sender: Public
  Company Number: None

PATIENT
  Age: 78 Year
  Sex: Male
  Weight: 94.5 kg

DRUGS (10)
  1. INDOMETHACIN [Suspect]
     Active Substance: INDOMETHACIN
     Indication: Bursitis
     Dosage: OTHER QUANTITY : 1 CAPSULE(S);?FREQUENCY : AS NEEDED;?
     Route: 048
  2. ATENOLOL [Concomitant]
     Active Substance: ATENOLOL
  3. SIMVASTATIN [Concomitant]
     Active Substance: SIMVASTATIN
  4. LISINOPRIL [Concomitant]
     Active Substance: LISINOPRIL
  5. TAMSULOSIN [Concomitant]
     Active Substance: TAMSULOSIN
  6. INDOMETHACIN [Concomitant]
     Active Substance: INDOMETHACIN
  7. AMLODIPINE BESYLATE [Concomitant]
     Active Substance: AMLODIPINE BESYLATE
  8. VITAMINS [Concomitant]
     Active Substance: VITAMINS
  9. L-SERINE [Concomitant]
  10. MACUHEALTH [Concomitant]

REACTIONS (2)
  - Heart rate decreased [None]
  - Insomnia [None]

NARRATIVE: CASE EVENT DATE: 20241016
